FAERS Safety Report 9602103 (Version 2)
Quarter: 2013Q4

REPORT INFORMATION
  Report Type: Spontaneous
  Country: US (occurrence: US)
  Receive Date: 20131007
  Receipt Date: 20131024
  Transmission Date: 20140711
  Serious: Yes (Other)
  Sender: FDA-Public Use
  Company Number: US-SA-2013SA095648

PATIENT
  Age: 40 Year
  Sex: Male
  Weight: 81 kg

DRUGS (2)
  1. LANTUS SOLOSTAR [Suspect]
     Indication: DIABETES MELLITUS INADEQUATE CONTROL
     Dosage: DOSE:25 UNIT(S)
     Route: 051
     Dates: start: 20120315, end: 20131002
  2. SOLOSTAR [Concomitant]
     Indication: DIABETES MELLITUS INADEQUATE CONTROL
     Dates: start: 20120315, end: 20131002

REACTIONS (3)
  - Renal failure chronic [Unknown]
  - Visual acuity reduced [Unknown]
  - Blood glucose increased [Unknown]
